FAERS Safety Report 15112562 (Version 1)
Quarter: 2018Q3

REPORT INFORMATION
  Report Type: Spontaneous
  Country: US (occurrence: US)
  Receive Date: 20180705
  Receipt Date: 20180705
  Transmission Date: 20181010
  Serious: Yes (Hospitalization, Other)
  Sender: FDA-Public Use
  Company Number: US-SA-2018SA168899

PATIENT
  Sex: Male

DRUGS (3)
  1. TAMSULOSIN [Concomitant]
     Active Substance: TAMSULOSIN
  2. ISOSORBIDE. [Concomitant]
     Active Substance: ISOSORBIDE
     Indication: ANGINA PECTORIS
  3. DULCOLAX (BISACODYL) [Suspect]
     Active Substance: BISACODYL

REACTIONS (4)
  - Loss of consciousness [Unknown]
  - Syncope [Unknown]
  - Hospitalisation [Unknown]
  - Fall [Unknown]
